FAERS Safety Report 16132196 (Version 1)
Quarter: 2019Q1

REPORT INFORMATION
  Report Type: Spontaneous
  Country: GB (occurrence: GB)
  Receive Date: 20190329
  Receipt Date: 20190329
  Transmission Date: 20190418
  Serious: Yes (Life-Threatening, Other)
  Sender: FDA-Public Use
  Company Number: GB-SA-2019SA085880

PATIENT
  Age: 60 Year
  Sex: Male
  Weight: 65 kg

DRUGS (1)
  1. DUPILUMAB [Suspect]
     Active Substance: DUPILUMAB
     Indication: DERMATITIS ATOPIC
     Dosage: 300 MG, QOW
     Route: 058
     Dates: start: 20181003

REACTIONS (1)
  - Mycosis fungoides stage IV [Not Recovered/Not Resolved]

NARRATIVE: CASE EVENT DATE: 20181101
